FAERS Safety Report 23647102 (Version 1)
Quarter: 2024Q1

REPORT INFORMATION
  Report Type: Spontaneous
  Country: US (occurrence: US)
  Receive Date: 20240319
  Receipt Date: 20240319
  Transmission Date: 20240409
  Serious: Yes (Hospitalization, Other)
  Sender: FDA-Public Use
  Company Number: US-GLAXOSMITHKLINE-US2024GSK034741

PATIENT

DRUGS (1)
  1. WELLBUTRIN [Suspect]
     Active Substance: BUPROPION HYDROCHLORIDE
     Indication: Product used for unknown indication
     Dosage: UNK

REACTIONS (9)
  - Drug abuse [Unknown]
  - Seizure [Unknown]
  - Mental status changes [Unknown]
  - Hallucination, visual [Unknown]
  - Confusional state [Unknown]
  - Agitation [Unknown]
  - Hallucination, auditory [Unknown]
  - Delirium [Recovered/Resolved]
  - Conversion disorder [Unknown]
